FAERS Safety Report 15126820 (Version 1)
Quarter: 2018Q3

REPORT INFORMATION
  Report Type: Spontaneous
  Country: US (occurrence: US)
  Receive Date: 20180710
  Receipt Date: 20180710
  Transmission Date: 20181010
  Serious: No
  Sender: FDA-Public Use
  Company Number: US-TARO-2018TAR00114

PATIENT
  Age: 5 Year
  Sex: Male

DRUGS (1)
  1. CETIRIZINE HCL [Suspect]
     Active Substance: CETIRIZINE HYDROCHLORIDE
     Dosage: 7 ML, ONCE
     Route: 048
     Dates: start: 20180208, end: 20180208

REACTIONS (5)
  - Expired product administered [Recovered/Resolved]
  - Accidental overdose [Recovered/Resolved]
  - Wrong drug administered [Recovered/Resolved]
  - Fatigue [Unknown]
  - Somnolence [Unknown]

NARRATIVE: CASE EVENT DATE: 20180208
